FAERS Safety Report 13832198 (Version 1)
Quarter: 2017Q3

REPORT INFORMATION
  Report Type: Spontaneous
  Country: US (occurrence: US)
  Receive Date: 20170803
  Receipt Date: 20170803
  Transmission Date: 20171127
  Serious: No
  Sender: FDA-Public Use
  Company Number: None

PATIENT
  Age: 13 Year
  Sex: Female
  Weight: 46.3 kg

DRUGS (1)
  1. PULMICORT RESPULES [Suspect]
     Active Substance: BUDESONIDE
     Indication: EOSINOPHILIC OESOPHAGITIS
     Dosage: 4 RESPULES = 2 MG ONCE DAILY ORAL
     Route: 048
     Dates: start: 20170715, end: 20170727

REACTIONS (2)
  - Dysgeusia [None]
  - Vomiting [None]

NARRATIVE: CASE EVENT DATE: 20170727
